FAERS Safety Report 6759384-1 (Version None)
Quarter: 2010Q2

REPORT INFORMATION
  Report Type: 
  Country: None (occurrence: None)
  Receive Date: 20100528
  Receipt Date: 20100526
  Transmission Date: 20101027
  Serious: No
  Sender: FDA-Public Use
  Company Number: C-10-0104-W

PATIENT
  Sex: Male
  Weight: 73.0291 kg

DRUGS (3)
  1. ENALAPRIL MALEATE TABLETS, 5MG (WOCKHARDT) [Suspect]
     Indication: HYPERTENSION
     Dosage: 5MG DAILY 047
     Dates: start: 20080101
  2. ALLEGRA [Concomitant]
  3. CLARITIN [Concomitant]

REACTIONS (5)
  - ARTHRALGIA [None]
  - BLOOD CHOLESTEROL INCREASED [None]
  - FATIGUE [None]
  - LETHARGY [None]
  - SOMNOLENCE [None]
